FAERS Safety Report 6390955-0 (Version None)
Quarter: 2009Q4

REPORT INFORMATION
  Report Type: 
  Country: None (occurrence: None)
  Receive Date: 20091001
  Receipt Date: 20090814
  Transmission Date: 20100525
  Serious: No
  Sender: FDA-Public Use
  Company Number: 1000007372

PATIENT
  Age: 70 Year
  Sex: Male

DRUGS (9)
  1. BYSTOLIC [Suspect]
     Indication: HYPERTENSION
     Dosage: 5 MG (5 MG, 1 IN 1 D), ORAL
     Route: 048
     Dates: start: 20090501
  2. LIPITOR [Concomitant]
  3. SYNTHROID [Concomitant]
  4. LISINOPRIL [Concomitant]
  5. VERAMYST [Concomitant]
  6. BENZONATE [Concomitant]
  7. AMBIEN [Concomitant]
  8. NORTRIPTYLINE [Concomitant]
  9. COUMADIN [Concomitant]

REACTIONS (4)
  - CONSTIPATION [None]
  - DIARRHOEA [None]
  - GASTRIC DISORDER [None]
  - WEIGHT DECREASED [None]
